FAERS Safety Report 25522638 (Version 2)
Quarter: 2025Q3

REPORT INFORMATION
  Report Type: Spontaneous
  Country: US (occurrence: US)
  Receive Date: 20250707
  Receipt Date: 20250717
  Transmission Date: 20251020
  Serious: Yes (Life-Threatening, Hospitalization)
  Sender: TEVA
  Company Number: US-TEVA-VS-3347856

PATIENT
  Age: 68 Year
  Sex: Male

DRUGS (6)
  1. PREDNISONE [Suspect]
     Active Substance: PREDNISONE
     Indication: Haemolytic anaemia
     Route: 065
  2. ACALABRUTINIB [Suspect]
     Active Substance: ACALABRUTINIB
     Indication: Chronic lymphocytic leukaemia
     Route: 065
  3. CLINDAMYCIN [Concomitant]
     Active Substance: CLINDAMYCIN
     Indication: Cellulitis
     Route: 065
  4. Immunoglobulins [Concomitant]
     Indication: Hypogammaglobulinaemia
     Route: 065
  5. FLUCYTOSINE [Suspect]
     Active Substance: FLUCYTOSINE
     Indication: Disseminated cryptococcosis
     Route: 048
  6. SULFAMETHOXAZOLE\TRIMETHOPRIM [Suspect]
     Active Substance: SULFAMETHOXAZOLE\TRIMETHOPRIM
     Indication: Stenotrophomonas infection
     Route: 048

REACTIONS (11)
  - Escherichia infection [Unknown]
  - Disseminated cryptococcosis [Unknown]
  - Nervous system disorder [Unknown]
  - Cryptococcosis [Unknown]
  - Drug intolerance [Unknown]
  - Encephalopathy [Unknown]
  - Stenotrophomonas infection [Unknown]
  - Pneumonia cytomegaloviral [Unknown]
  - Respiratory failure [Unknown]
  - Aspergillus infection [Unknown]
  - Aspergillus infection [Unknown]
